FAERS Safety Report 9249533 (Version 1)
Quarter: 2013Q2

REPORT INFORMATION
  Report Type: Spontaneous
  Country: IT (occurrence: IT)
  Receive Date: 20130423
  Receipt Date: 20130423
  Transmission Date: 20140414
  Serious: Yes (Hospitalization)
  Sender: FDA-Public Use
  Company Number: IT-TEVA-398861ISR

PATIENT
  Age: 34 Year
  Sex: Male

DRUGS (5)
  1. ZOLPIDEM [Suspect]
     Indication: INSOMNIA
     Dosage: 1 DOSAGE FORMS DAILY;
     Route: 048
     Dates: start: 20130410, end: 20130411
  2. NOZINAN [Suspect]
     Indication: INSOMNIA
     Dosage: 1 DOSAGE FORMS DAILY;
     Route: 048
     Dates: start: 20130406, end: 20130411
  3. TAVOR [Suspect]
     Indication: INSOMNIA
     Dosage: 1 DOSAGE FORMS DAILY;
     Route: 048
     Dates: start: 20130411, end: 20130411
  4. AMISULPRIDE [Concomitant]
     Dosage: 800 MG
     Route: 048
  5. CARBOLITHIUM [Concomitant]
     Dosage: 3 DOSAGE FORMS
     Route: 048
     Dates: start: 2007

REACTIONS (5)
  - Sopor [Recovering/Resolving]
  - Dyspnoea [Recovering/Resolving]
  - Oxygen saturation decreased [Recovering/Resolving]
  - Bradykinesia [Recovering/Resolving]
  - Bradyphrenia [Recovering/Resolving]
